FAERS Safety Report 22601685 (Version 1)
Quarter: 2023Q2

REPORT INFORMATION
  Report Type: Spontaneous
  Country: US (occurrence: None)
  Receive Date: 20230613
  Receipt Date: 20230613
  Transmission Date: 20230722
  Serious: Yes (Hospitalization)
  Sender: FDA-Public Use
  Company Number: None

PATIENT
  Sex: Male

DRUGS (1)
  1. STELARA [Suspect]
     Active Substance: USTEKINUMAB
     Indication: Crohn^s disease
     Dosage: 90MG  EVERY 8 WEEKS SUBCUTANEOUSLY
     Route: 058
     Dates: start: 202212

REACTIONS (3)
  - Intestinal obstruction [None]
  - Gastrointestinal scarring [None]
  - Crohn^s disease [None]
